FAERS Safety Report 4680405-4 (Version None)
Quarter: 2005Q2

REPORT INFORMATION
  Report Type: 
  Country: None (occurrence: None)
  Receive Date: 20050601
  Receipt Date: 20050516
  Transmission Date: 20051028
  Serious: Yes (Hospitalization)
  Sender: FDA-Public Use
  Company Number: GBS050517417

PATIENT
  Age: 21 Year
  Sex: Male

DRUGS (1)
  1. ZYPREXA [Suspect]
     Indication: SCHIZOPHRENIA
     Dosage: 10 MG DAY
     Dates: start: 20010101, end: 20040820

REACTIONS (5)
  - COMA [None]
  - LUNG DISORDER [None]
  - OBSTRUCTION [None]
  - PANCREATITIS [None]
  - WEIGHT DECREASED [None]
